FAERS Safety Report 4971297-4 (Version None)
Quarter: 2006Q2

REPORT INFORMATION
  Report Type: 
  Country: None (occurrence: None)
  Receive Date: 20060413
  Receipt Date: 20050419
  Transmission Date: 20061013
  Serious: Yes (Hospitalization)
  Sender: FDA-Public Use
  Company Number: US-MERCK-0504USA03765

PATIENT
  Age: 84 Year
  Sex: Female
  Weight: 58 kg

DRUGS (1)
  1. VIOXX [Suspect]
     Indication: ARTHRALGIA
     Route: 048
     Dates: start: 20000508, end: 20040901

REACTIONS (25)
  - ANXIETY [None]
  - AORTIC VALVE DISEASE [None]
  - APHASIA [None]
  - ARTHROPATHY [None]
  - ATRIOVENTRICULAR BLOCK COMPLETE [None]
  - CAROTID ARTERY DISEASE [None]
  - CEREBROVASCULAR ACCIDENT [None]
  - CHRONIC OBSTRUCTIVE PULMONARY DISEASE [None]
  - DEPRESSION [None]
  - DIABETES MELLITUS NON-INSULIN-DEPENDENT [None]
  - DYSPNOEA [None]
  - FALL [None]
  - FRACTURE [None]
  - HYPERLIPIDAEMIA [None]
  - HYPERTENSIVE ENCEPHALOPATHY [None]
  - HYPOTHYROIDISM [None]
  - INSOMNIA [None]
  - MUSCLE STRAIN [None]
  - NEUROPATHY PERIPHERAL [None]
  - OSTEOARTHRITIS [None]
  - SINUS ARRHYTHMIA [None]
  - SYNCOPE [None]
  - TRANSIENT ISCHAEMIC ATTACK [None]
  - URINARY TRACT INFECTION [None]
  - WRONG TECHNIQUE IN DRUG USAGE PROCESS [None]
